FAERS Safety Report 10921938 (Version 1)
Quarter: 2015Q1

REPORT INFORMATION
  Report Type: Spontaneous
  Country: CN (occurrence: CN)
  Receive Date: 20150317
  Receipt Date: 20150317
  Transmission Date: 20150721
  Serious: Yes (Other)
  Sender: FDA-Public Use
  Company Number: CN-BAXTER-2015BAX013054

PATIENT
  Age: 5 Month
  Sex: Female
  Weight: 7.5 kg

DRUGS (2)
  1. CEFAZOLIN SODIUM PENTAHYDRATE FOR INJECTION [Suspect]
     Active Substance: CEFAZOLIN SODIUM
     Indication: GASTROENTERITIS
     Route: 041
     Dates: start: 20140626, end: 20140626
  2. 0.9% SODIUM CHLORIDE INJECTION [Suspect]
     Active Substance: SODIUM CHLORIDE
     Indication: MEDICATION DILUTION
     Route: 041
     Dates: start: 20140626, end: 20140626

REACTIONS (1)
  - Rash [Recovered/Resolved]

NARRATIVE: CASE EVENT DATE: 20140626
